FAERS Safety Report 4767765-0 (Version None)
Quarter: 2005Q3

REPORT INFORMATION
  Report Type: 
  Country: None (occurrence: None)
  Receive Date: 20050912
  Receipt Date: 20050426
  Transmission Date: 20060218
  Serious: Yes (Hospitalization)
  Sender: FDA-Public Use
  Company Number: 2005122845

PATIENT
  Age: 26 Year
  Sex: Female

DRUGS (1)
  1. BEXTRA [Suspect]
     Indication: BREAST OPERATION
     Dosage: 80 MG (40 MG, 2 IN 1 D), ORAL
     Route: 048
     Dates: start: 20050112

REACTIONS (3)
  - GENITAL PRURITUS FEMALE [None]
  - MEDICAL DEVICE COMPLICATION [None]
  - RASH ERYTHEMATOUS [None]
